FAERS Safety Report 14032114 (Version 1)
Quarter: 2017Q4

REPORT INFORMATION
  Report Type: Spontaneous
  Country: US (occurrence: US)
  Receive Date: 20171002
  Receipt Date: 20171002
  Transmission Date: 20180321
  Serious: Yes (Other)
  Sender: FDA-Public Use
  Company Number: US-PFIZER INC-2017417765

PATIENT
  Age: 16 Year
  Sex: Female
  Weight: 38.56 kg

DRUGS (1)
  1. GENOTROPIN [Suspect]
     Active Substance: SOMATROPIN
     Dosage: UNK
     Dates: start: 201610

REACTIONS (4)
  - Intentional product misuse [Unknown]
  - Bone cyst [Unknown]
  - Arthropathy [Unknown]
  - Impaired healing [Unknown]
